FAERS Safety Report 18936191 (Version 2)
Quarter: 2021Q1

REPORT INFORMATION
  Report Type: Spontaneous
  Country: CN (occurrence: CN)
  Receive Date: 20210225
  Receipt Date: 20210301
  Transmission Date: 20210420
  Serious: Yes (Life-Threatening, Hospitalization)
  Sender: FDA-Public Use
  Company Number: CN-TEVA-2021-CN-1882234

PATIENT
  Age: 42 Year
  Sex: Female

DRUGS (2)
  1. CICLOSPORIN [Suspect]
     Active Substance: CYCLOSPORINE
     Indication: IMMUNOSUPPRESSANT DRUG THERAPY
     Route: 065
  2. MEDROL [Suspect]
     Active Substance: METHYLPREDNISOLONE
     Indication: IMMUNOSUPPRESSANT DRUG THERAPY
     Route: 065

REACTIONS (6)
  - Pneumonia [Recovering/Resolving]
  - Brain abscess [Recovering/Resolving]
  - Nocardiosis [Recovering/Resolving]
  - Cardio-respiratory arrest [Recovered/Resolved]
  - Epilepsy [Recovered/Resolved]
  - Soft tissue infection [Recovering/Resolving]
